FAERS Safety Report 7380031 (Version 11)
Quarter: 2012Q4

REPORT INFORMATION
  Report Type: 
  Country: US (occurrence: US)
  Receive Date: 20100507
  Receipt Date: 20121220
  Transmission Date: 20130627
  Serious: Yes (Hospitalization)
  Sender: FDA-Public Use
  Company Number: US-BIOGENIDEC-2010BI014124

PATIENT
  Age: 55 Year
  Sex: Female
  Weight: 43 kg

DRUGS (4)
  1. AVONEX [Suspect]
     Indication: MULTIPLE SCLEROSIS
     Route: 030
     Dates: start: 200112, end: 2003
  2. AVONEX [Suspect]
     Indication: MULTIPLE SCLEROSIS
     Route: 030
     Dates: start: 2003
  3. DIAZEPAM [Concomitant]
     Indication: PREMEDICATION
  4. PREMARIN [Concomitant]
     Indication: MENOPAUSE

REACTIONS (50)
  - Device failure [Recovered/Resolved]
  - Loss of control of legs [Not Recovered/Not Resolved]
  - Weight bearing difficulty [Recovered/Resolved]
  - Thyroid neoplasm [Not Recovered/Not Resolved]
  - Intervertebral disc protrusion [Not Recovered/Not Resolved]
  - Micturition urgency [Not Recovered/Not Resolved]
  - Visual acuity reduced [Recovered/Resolved]
  - Underweight [Not Recovered/Not Resolved]
  - Joint swelling [Recovered/Resolved]
  - Oedema peripheral [Recovered/Resolved]
  - Urinary tract infection [Recovered/Resolved]
  - Impaired healing [Not Recovered/Not Resolved]
  - Hypotension [Recovered/Resolved]
  - Muscle twitching [Not Recovered/Not Resolved]
  - Mobility decreased [Not Recovered/Not Resolved]
  - Skin discolouration [Recovered/Resolved]
  - Memory impairment [Recovered/Resolved]
  - Injection site haemorrhage [Recovered/Resolved]
  - Multiple sclerosis [Unknown]
  - Balance disorder [Not Recovered/Not Resolved]
  - Fall [Recovered/Resolved]
  - Hand fracture [Unknown]
  - Feeling drunk [Unknown]
  - Hemiparesis [Not Recovered/Not Resolved]
  - Back pain [Recovered/Resolved]
  - Musculoskeletal disorder [Not Recovered/Not Resolved]
  - Agitation [Not Recovered/Not Resolved]
  - Coordination abnormal [Not Recovered/Not Resolved]
  - Skin exfoliation [Not Recovered/Not Resolved]
  - Excoriation [Recovered/Resolved]
  - Blood blister [Not Recovered/Not Resolved]
  - Progressive multiple sclerosis [Unknown]
  - Agraphia [Not Recovered/Not Resolved]
  - Incontinence [Not Recovered/Not Resolved]
  - Gait disturbance [Not Recovered/Not Resolved]
  - Feeling abnormal [Recovered/Resolved]
  - Abasia [Unknown]
  - Blindness unilateral [Not Recovered/Not Resolved]
  - Depression [Recovered/Resolved]
  - Asthenia [Recovered/Resolved]
  - Multiple sclerosis relapse [Unknown]
  - Injection site pain [Recovered/Resolved]
  - Fatigue [Recovered/Resolved]
  - Neck pain [Recovered/Resolved]
  - Pain in extremity [Recovered/Resolved]
  - Anxiety [Not Recovered/Not Resolved]
  - Arthralgia [Recovered/Resolved]
  - Pain [Recovered/Resolved]
  - Muscular weakness [Not Recovered/Not Resolved]
  - Musculoskeletal pain [Unknown]
